FAERS Safety Report 25171184 (Version 2)
Quarter: 2025Q3

REPORT INFORMATION
  Report Type: Spontaneous
  Country: CN (occurrence: CN)
  Receive Date: 20250408
  Receipt Date: 20250809
  Transmission Date: 20251020
  Serious: Yes (Hospitalization, Other)
  Sender: ALEXION PHARMACEUTICALS
  Company Number: CN-ASTRAZENECA-202503CHN027765CN

PATIENT
  Sex: Female
  Weight: 53 kg

DRUGS (3)
  1. TAGRISSO [Suspect]
     Active Substance: OSIMERTINIB
     Indication: Lung adenocarcinoma
     Dosage: 80.000 MILLIGRAM, QD
     Dates: start: 20250217, end: 20250221
  2. ETOPOSIDE [Suspect]
     Active Substance: ETOPOSIDE
     Indication: Lung adenocarcinoma
     Dosage: 0.100 GRAM, QD
     Dates: start: 20250214, end: 20250216
  3. CISPLATIN [Suspect]
     Active Substance: CISPLATIN
     Indication: Lung adenocarcinoma
     Dosage: 80.000 MILLIGRAM, QD
     Dates: start: 20250214, end: 20250214

REACTIONS (9)
  - Herpes zoster [Recovering/Resolving]
  - Malignant neoplasm progression [Unknown]
  - Cough [Unknown]
  - Productive cough [Unknown]
  - Diarrhoea [Unknown]
  - Pneumonia [Unknown]
  - Asthenia [Unknown]
  - Decreased appetite [Unknown]
  - Skin infection [Unknown]
